FAERS Safety Report 6942085-4 (Version None)
Quarter: 2010Q3

REPORT INFORMATION
  Report Type: 
  Country: None (occurrence: None)
  Receive Date: 20100826
  Receipt Date: 20100820
  Transmission Date: 20110219
  Serious: Yes (Death, Life-Threatening, Hospitalization)
  Sender: FDA-Public Use
  Company Number: US-ELI_LILLY_AND_COMPANY-US201008005976

PATIENT
  Sex: Female

DRUGS (19)
  1. GEMCITABINE HCL [Suspect]
     Indication: PANCREATIC CARCINOMA
     Dosage: 1000 MG/M2, UNK
     Dates: start: 20100413
  2. PACLITAXEL [Suspect]
     Indication: PANCREATIC CARCINOMA
     Dosage: 125 MG/M2, UNK
     Dates: start: 20100413
  3. CEPHALEXIN [Concomitant]
     Indication: CELLULITIS
     Dosage: 100 MG, UNK
     Route: 048
     Dates: start: 20100811, end: 20100813
  4. ALPRAZOLAM [Concomitant]
     Route: 048
     Dates: start: 19850411
  5. VALSARTAN [Concomitant]
     Dosage: 160 MG, UNK
     Route: 048
  6. ACETAMINOPHEN AND CODEINE PHOSPHATE [Concomitant]
     Dosage: 1 D/F, 2/D
     Route: 048
     Dates: start: 19290303
  7. CYCLOBENZAPRINE HCL [Concomitant]
     Dosage: 10 MG, UNK
     Route: 048
     Dates: start: 20090303
  8. PROCHLORPERAZINE [Concomitant]
     Dosage: 10 MG, AS NEEDED
     Route: 048
     Dates: start: 20100413
  9. LEVOFLOXACIN [Concomitant]
     Dosage: 500 MG, UNK
     Route: 048
     Dates: start: 20100413
  10. AMLODIPINE BESYLATE [Concomitant]
     Route: 048
     Dates: start: 20100413
  11. DOCUSATE SODIUM [Concomitant]
     Dosage: 5 MG, UNK
     Route: 048
     Dates: start: 20100415
  12. LORATADINE [Concomitant]
     Dosage: 1 D/F, DAILY (1/D)
     Dates: start: 20100426
  13. FLUCONAZOLE [Concomitant]
     Dosage: 200 MG, UNK
     Route: 048
     Dates: start: 20100511
  14. LIDOCAINE HCL VISCOUS [Concomitant]
     Dosage: 15 MG, AS NEEDED
     Route: 048
     Dates: start: 20100518
  15. ACYCLOVIR SODIUM [Concomitant]
     Dosage: 1200 MG, UNK
     Route: 048
     Dates: start: 20100518
  16. CLOTRIMAZOLE [Concomitant]
     Dosage: 10 MG, OTHER
     Route: 048
     Dates: start: 20100608
  17. MEGESTROL [Concomitant]
     Dosage: 20 MG, UNK
     Route: 048
     Dates: start: 20100615
  18. BISACODYL [Concomitant]
     Dosage: 1 D/F, UNK
     Route: 048
     Dates: start: 20100705
  19. CIPROFLOXACIN [Concomitant]
     Dosage: 1000 MG, UNK
     Route: 048
     Dates: start: 20100712

REACTIONS (1)
  - NEUTROPENIC SEPSIS [None]
